FAERS Safety Report 9818803 (Version 1)
Quarter: 2014Q1

REPORT INFORMATION
  Report Type: Spontaneous
  Country: US (occurrence: None)
  Receive Date: 20140114
  Receipt Date: 20140114
  Transmission Date: 20141002
  Serious: Yes (Life-Threatening, Hospitalization)
  Sender: FDA-Public Use
  Company Number: None

PATIENT
  Age: 34 Year
  Sex: Male
  Weight: 90.7 kg

DRUGS (1)
  1. HALDOL 5MG [Suspect]
     Indication: HALLUCINATION
     Route: 030
     Dates: start: 20140104, end: 20140105

REACTIONS (1)
  - Neuroleptic malignant syndrome [None]
